FAERS Safety Report 7310772-4 (Version None)
Quarter: 2011Q1

REPORT INFORMATION
  Report Type: 
  Country: None (occurrence: None)
  Receive Date: 20110224
  Receipt Date: 20110128
  Transmission Date: 20110831
  Serious: No
  Sender: FDA-Public Use
  Company Number: US-B.I. PHARMACEUTICALS,INC./RIDGEFIELD-2011-BP-03059BP

PATIENT
  Sex: Male

DRUGS (7)
  1. MULTAQ [Concomitant]
     Indication: ATRIAL FIBRILLATION
     Dosage: 800 MG
     Route: 048
     Dates: start: 20090101
  2. FLOMAX [Concomitant]
     Indication: PROSTATIC DISORDER
     Dosage: 0.4 MG
     Route: 048
     Dates: start: 20090101
  3. BACTRIM DS [Concomitant]
     Route: 048
     Dates: start: 20100101
  4. FIBER [Suspect]
     Indication: CONSTIPATION
     Route: 048
     Dates: start: 20110124
  5. LEVITRA [Concomitant]
     Indication: ERECTILE DYSFUNCTION
     Dosage: 10 MG
     Route: 048
  6. TOPROL-XL [Concomitant]
     Indication: HYPERTENSION
     Route: 048
     Dates: start: 20090101
  7. PRADAXA [Suspect]
     Indication: ATRIAL FIBRILLATION
     Dosage: 300 MG
     Route: 048
     Dates: start: 20110126

REACTIONS (7)
  - BLOOD URINE PRESENT [None]
  - DIARRHOEA [None]
  - URINE ABNORMALITY [None]
  - DEFAECATION URGENCY [None]
  - ABDOMINAL PAIN UPPER [None]
  - DYSPEPSIA [None]
  - FREQUENT BOWEL MOVEMENTS [None]
